FAERS Safety Report 6829496-2 (Version None)
Quarter: 2010Q3

REPORT INFORMATION
  Report Type: 
  Country: None (occurrence: None)
  Receive Date: 20100709
  Receipt Date: 20071029
  Transmission Date: 20110219
  Serious: Yes (Hospitalization, Other)
  Sender: FDA-Public Use
  Company Number: US-PFIZER INC-2007019756

PATIENT
  Sex: Male
  Weight: 59 kg

DRUGS (4)
  1. CHANTIX [Suspect]
     Indication: EX-TOBACCO USER
     Dates: start: 20070302
  2. HYDROCHLOROTHIAZIDE [Concomitant]
  3. ALBUTEROL [Concomitant]
  4. ADVIL LIQUI-GELS [Concomitant]

REACTIONS (4)
  - CHEST PAIN [None]
  - FATIGUE [None]
  - SOMNOLENCE [None]
  - STRESS [None]
